FAERS Safety Report 11116381 (Version 3)
Quarter: 2015Q3

REPORT INFORMATION
  Report Type: Spontaneous
  Country: US (occurrence: US)
  Receive Date: 20150515
  Receipt Date: 20150811
  Transmission Date: 20151125
  Serious: Yes (Death)
  Sender: FDA-Public Use
  Company Number: US-CELGENE-USA-2015052474

PATIENT
  Age: 78 Year
  Sex: Female

DRUGS (2)
  1. REVLIMID [Suspect]
     Active Substance: LENALIDOMIDE
     Route: 048
     Dates: start: 201403, end: 201505
  2. REVLIMID [Suspect]
     Active Substance: LENALIDOMIDE
     Indication: PLASMA CELL MYELOMA
     Route: 048
     Dates: start: 20120515

REACTIONS (6)
  - Lung disorder [Fatal]
  - Sickle cell trait [Fatal]
  - Renal failure [Fatal]
  - Pneumonia [Fatal]
  - Plasma cell myeloma [Fatal]
  - Dementia [Fatal]

NARRATIVE: CASE EVENT DATE: 20150502
